FAERS Safety Report 5871381-7 (Version None)
Quarter: 2008Q3

REPORT INFORMATION
  Report Type: 
  Country: None (occurrence: None)
  Receive Date: 20080904
  Receipt Date: 20080904
  Transmission Date: 20090109
  Serious: Yes (Disabling)
  Sender: FDA-Public Use
  Company Number: None

PATIENT
  Age: 50 Year
  Sex: Male
  Weight: 90 kg

DRUGS (4)
  1. GADOLLINIUM - OTHER INFO AVAIL ONLY TO RADIOLOGY DEPARTMENT [Suspect]
     Indication: CONTRAST MEDIA ALLERGY
     Dosage: ONE TIME IV
     Route: 042
     Dates: start: 20050427
  2. GADOLLINIUM - OTHER INFO AVAIL ONLY TO RADIOLOGY DEPARTMENT [Suspect]
     Indication: DEVICE OCCLUSION
     Dosage: ONE TIME IV
     Route: 042
     Dates: start: 20050427
  3. GADOLLINIUM - OTHER INFO AVAIL ONLY TO RADIOLOGY DEPARTMENT [Suspect]
     Indication: CONTRAST MEDIA ALLERGY
     Dosage: ONE TIME IV
     Route: 042
     Dates: start: 20051026
  4. GADOLLINIUM - OTHER INFO AVAIL ONLY TO RADIOLOGY DEPARTMENT [Suspect]
     Indication: DEVICE OCCLUSION
     Dosage: ONE TIME IV
     Route: 042
     Dates: start: 20051026

REACTIONS (1)
  - NEPHROGENIC SYSTEMIC FIBROSIS [None]
